FAERS Safety Report 17757776 (Version 18)
Quarter: 2022Q3

REPORT INFORMATION
  Report Type: Report from Study
  Country: CA (occurrence: CA)
  Receive Date: 20200507
  Receipt Date: 20220902
  Transmission Date: 20221026
  Serious: Yes (Hospitalization, Other)
  Sender: FDA-Public Use
  Company Number: NVSC2020CA122648

PATIENT
  Age: 33 Year
  Sex: Female
  Weight: 116.1 kg

DRUGS (9)
  1. KESIMPTA [Suspect]
     Active Substance: OFATUMUMAB
     Indication: Relapsing-remitting multiple sclerosis
     Dosage: 20 MG, Q4W
     Route: 058
     Dates: start: 20190925, end: 20200411
  2. KESIMPTA [Suspect]
     Active Substance: OFATUMUMAB
     Indication: Multiple sclerosis relapse
     Dosage: UNK
     Route: 065
     Dates: start: 20210820
  3. ECHINACEA [Concomitant]
     Active Substance: ECHINACEA, UNSPECIFIED
     Indication: Lower respiratory tract infection
     Dosage: UNK
     Route: 065
     Dates: start: 20191015, end: 20200420
  4. VITAMIN C [Concomitant]
     Active Substance: ASCORBIC ACID
     Indication: Vitamin supplementation
     Dosage: UNK
     Route: 065
     Dates: start: 20180418, end: 20200420
  5. VITAMIN B12 [Concomitant]
     Active Substance: CYANOCOBALAMIN
     Indication: Vitamin supplementation
     Dosage: UNK
     Route: 065
     Dates: start: 20171110, end: 20200420
  6. VITAMIN D [Concomitant]
     Active Substance: VITAMIN D NOS
     Indication: Vitamin supplementation
     Dosage: UNK
     Route: 065
     Dates: start: 20160901, end: 20200420
  7. MAGNESIUM [Concomitant]
     Active Substance: MAGNESIUM
     Indication: Vitamin supplementation
     Dosage: UNK
     Route: 065
     Dates: start: 20180418, end: 20200420
  8. ADVIL [Concomitant]
     Active Substance: IBUPROFEN
     Indication: Abdominal pain
     Dosage: UNK
     Route: 065
     Dates: start: 20200420, end: 20200423
  9. ADVIL [Concomitant]
     Active Substance: IBUPROFEN
     Indication: Migraine

REACTIONS (4)
  - Abscess [Recovered/Resolved]
  - Appendicitis perforated [Recovered/Resolved]
  - Mesenteric vein thrombosis [Recovered/Resolved]
  - Appendicitis [Unknown]

NARRATIVE: CASE EVENT DATE: 20200428
